FAERS Safety Report 7295990-6 (Version None)
Quarter: 2011Q1

REPORT INFORMATION
  Report Type: 
  Country: None (occurrence: None)
  Receive Date: 20110216
  Receipt Date: 20110210
  Transmission Date: 20110831
  Serious: Yes (Death)
  Sender: FDA-Public Use
  Company Number: CH-ROCHE-706795

PATIENT
  Sex: Male
  Weight: 85 kg

DRUGS (11)
  1. VALSARTAN [Concomitant]
     Dates: start: 20090611
  2. FINASTERIDE [Concomitant]
     Dates: start: 20091209
  3. BISOPROLOL [Concomitant]
     Dates: start: 20090611
  4. BEVACIZUMAB [Suspect]
     Dosage: FORM: INFUSION
     Route: 042
     Dates: start: 20100510
  5. CAPECITABINE [Suspect]
     Route: 048
     Dates: start: 20100510
  6. IRINOTECAN [Suspect]
     Dosage: FORM: INFUSION
     Route: 042
     Dates: start: 20100510
  7. ACETYLSALICYLIC ACID [Concomitant]
     Dates: start: 20090611
  8. METFORMIN HCL [Concomitant]
     Dates: start: 20010101
  9. VILDAGLIPTINE [Concomitant]
     Dates: start: 20091204
  10. SIMVASTATIN [Concomitant]
     Dates: start: 20090611
  11. AMLODIPINE [Concomitant]
     Dates: start: 20090611

REACTIONS (1)
  - UPPER GASTROINTESTINAL HAEMORRHAGE [None]
